FAERS Safety Report 8510739-4 (Version None)
Quarter: 2012Q3

REPORT INFORMATION
  Report Type: 
  Country: None (occurrence: None)
  Receive Date: 20120716
  Receipt Date: 20120710
  Transmission Date: 20120928
  Serious: No
  Sender: FDA-Public Use
  Company Number: US-PFIZER INC-2012124808

PATIENT
  Sex: Female

DRUGS (3)
  1. XALKORI [Suspect]
     Indication: LUNG NEOPLASM MALIGNANT
     Dosage: 250 MG, 2X/DAY
     Route: 048
     Dates: start: 20111104, end: 20111106
  2. XALKORI [Suspect]
     Indication: TRACHEAL CANCER
     Dosage: 200 MG, 2X/DAY
     Dates: start: 20120418
  3. XALKORI [Suspect]
     Indication: BRONCHIAL CARCINOMA

REACTIONS (2)
  - VOMITING [None]
  - NAUSEA [None]
